FAERS Safety Report 19254455 (Version 1)
Quarter: 2021Q2

REPORT INFORMATION
  Report Type: Spontaneous
  Country: US (occurrence: US)
  Receive Date: 20210513
  Receipt Date: 20210513
  Transmission Date: 20210717
  Serious: Yes (Hospitalization, Other)
  Sender: FDA-Public Use
  Company Number: US-PFIZER INC-2021486128

PATIENT
  Age: 69 Year

DRUGS (1)
  1. XELJANZ [Suspect]
     Active Substance: TOFACITINIB CITRATE

REACTIONS (10)
  - Fall [Unknown]
  - Neoplasm malignant [Unknown]
  - Loss of personal independence in daily activities [Unknown]
  - Femur fracture [Unknown]
  - Illness [Unknown]
  - Red blood cell count abnormal [Unknown]
  - Rheumatoid arthritis [Unknown]
  - Joint injury [Unknown]
  - Malaise [Unknown]
  - Myelodysplastic syndrome [Unknown]
